FAERS Safety Report 20449570 (Version 1)
Quarter: 2022Q1

REPORT INFORMATION
  Report Type: Spontaneous
  Country: US (occurrence: None)
  Receive Date: 20220208
  Receipt Date: 20220208
  Transmission Date: 20220424
  Serious: No
  Sender: FDA-Public Use
  Company Number: None

PATIENT
  Age: 38 Year
  Sex: Female
  Weight: 70.65 kg

DRUGS (18)
  1. .DELTA.8-TETRAHYDROCANNABINOL\CANNABIDIOL\HERBALS [Suspect]
     Active Substance: .DELTA.8-TETRAHYDROCANNABINOL\CANNABIDIOL\HERBALS
     Indication: Product used for unknown indication
     Dosage: OTHER QUANTITY : 10 10 PK GUMMY;?FREQUENCY : EVERY 6 HOURS;?
     Route: 048
     Dates: start: 20220208, end: 20220208
  2. LITHIUM [Concomitant]
     Active Substance: LITHIUM
  3. AMITRIPTYLINE [Concomitant]
     Active Substance: AMITRIPTYLINE
  4. TRINTELLIX [Concomitant]
     Active Substance: VORTIOXETINE HYDROBROMIDE
  5. TELIMASARTIN [Concomitant]
  6. MELOXICAM [Concomitant]
     Active Substance: MELOXICAM
  7. VALIUM [Concomitant]
     Active Substance: DIAZEPAM
  8. HYDROCODONE [Concomitant]
     Active Substance: HYDROCODONE
  9. MINIPRESS [Concomitant]
     Active Substance: PRAZOSIN HYDROCHLORIDE
  10. NEXIUM [Concomitant]
     Active Substance: ESOMEPRAZOLE MAGNESIUM
  11. HERBALS [Concomitant]
     Active Substance: HERBALS
  12. VITAMIN D NOS [Concomitant]
     Active Substance: VITAMIN D NOS
  13. VITAMIN B12 [Concomitant]
     Active Substance: CYANOCOBALAMIN
  14. PYRIDOXINE HYDROCHLORIDE [Concomitant]
     Active Substance: PYRIDOXINE HYDROCHLORIDE
  15. CALCIUM [Concomitant]
     Active Substance: CALCIUM
  16. GLUCOSAMINE [Concomitant]
     Active Substance: GLUCOSAMINE
  17. OMEGA 3 [Concomitant]
     Active Substance: CAPSAICIN
  18. WOMEN^S MULTI VITAMINS [Concomitant]

REACTIONS (14)
  - Dizziness [None]
  - Dizziness [None]
  - Balance disorder [None]
  - Tremor [None]
  - Paranoia [None]
  - Feeling abnormal [None]
  - Dysphonia [None]
  - Dry mouth [None]
  - Heart rate irregular [None]
  - Anxiety [None]
  - Product complaint [None]
  - Heart rate increased [None]
  - Blood pressure decreased [None]
  - Product formulation issue [None]

NARRATIVE: CASE EVENT DATE: 20220208
